FAERS Safety Report 4637088-9 (Version None)
Quarter: 2005Q2

REPORT INFORMATION
  Report Type: 
  Country: None (occurrence: None)
  Receive Date: 20050325
  Receipt Date: 20041202
  Transmission Date: 20051028
  Serious: No
  Sender: FDA-Public Use
  Company Number: USA041081836

PATIENT
  Age: 69 Year
  Sex: Female

DRUGS (5)
  1. FORTEO [Suspect]
     Indication: OSTEOPOROSIS
     Dosage: 20 UG DAY
     Dates: start: 20040211
  2. EVISTA [Suspect]
     Indication: OSTEOPOROSIS
     Dates: end: 20040301
  3. CALCIUM GLUCONATE [Concomitant]
  4. INDERAL [Concomitant]
  5. ALPHAGAN [Concomitant]

REACTIONS (6)
  - ASTHENIA [None]
  - BLOOD CALCIUM INCREASED [None]
  - CHILLS [None]
  - HYPERCALCAEMIA [None]
  - INJECTION SITE ERYTHEMA [None]
  - INJECTION SITE HAEMORRHAGE [None]
